FAERS Safety Report 17056398 (Version 1)
Quarter: 2019Q4

REPORT INFORMATION
  Report Type: Spontaneous
  Country: US (occurrence: US)
  Receive Date: 20191121
  Receipt Date: 20191121
  Transmission Date: 20200122
  Serious: No
  Sender: FDA-Public Use
  Company Number: US-ASTRAZENECA-2019SF30585

PATIENT
  Age: 14486 Day
  Sex: Female
  Weight: 97.5 kg

DRUGS (1)
  1. BYDUREON BCISE [Suspect]
     Active Substance: EXENATIDE
     Indication: WEIGHT CONTROL
     Route: 058
     Dates: start: 20190813

REACTIONS (5)
  - Injection site irritation [Unknown]
  - Injection site bruising [Unknown]
  - Device issue [Unknown]
  - Injection site erythema [Unknown]
  - Drug dose omission by device [Unknown]

NARRATIVE: CASE EVENT DATE: 20190820
